FAERS Safety Report 7417792-X (Version None)
Quarter: 2011Q2

REPORT INFORMATION
  Report Type: 
  Country: None (occurrence: None)
  Receive Date: 20110407
  Receipt Date: 20110325
  Transmission Date: 20111010
  Serious: Yes (Hospitalization)
  Sender: FDA-Public Use
  Company Number: 2011MA002399

PATIENT
  Age: 6 Year
  Sex: Male

DRUGS (2)
  1. PHENOBARBITAL TAB [Suspect]
     Indication: EPILEPSY
  2. VALPROIC ACID [Suspect]
     Indication: EPILEPSY

REACTIONS (6)
  - SMOOTH MUSCLE ANTIBODY POSITIVE [None]
  - DRUG RASH WITH EOSINOPHILIA AND SYSTEMIC SYMPTOMS [None]
  - ANTINUCLEAR ANTIBODY POSITIVE [None]
  - TOXIC SKIN ERUPTION [None]
  - DRUG EFFECT DECREASED [None]
  - TONSILLITIS [None]
